FAERS Safety Report 10990481 (Version 2)
Quarter: 2016Q3

REPORT INFORMATION
  Report Type: Spontaneous
  Country: US (occurrence: US)
  Receive Date: 20150406
  Receipt Date: 20160909
  Transmission Date: 20161109
  Serious: Yes (Hospitalization)
  Sender: FDA-Public Use
  Company Number: US-BAYER-2015-094333

PATIENT
  Age: 33 Year
  Sex: Female
  Weight: 98.87 kg

DRUGS (16)
  1. PRENATAL VITAMINS [Concomitant]
     Active Substance: VITAMINS
  2. MEDROL [Concomitant]
     Active Substance: METHYLPREDNISOLONE
  3. VITAMIN C [Concomitant]
     Active Substance: ASCORBIC ACID
  4. WELLBUTRIN [Concomitant]
     Active Substance: BUPROPION HYDROCHLORIDE
  5. MIRENA [Suspect]
     Active Substance: LEVONORGESTREL
     Indication: CONTRACEPTION
     Dosage: 20 MCG/24HR, CONT
     Route: 015
     Dates: start: 20090923, end: 20131025
  6. ANUSOL [STARCH] [Concomitant]
  7. LORTAB [Concomitant]
     Active Substance: ACETAMINOPHEN\HYDROCODONE BITARTRATE
     Dosage: UNK
     Dates: start: 2000
  8. METRONIDAZOLE. [Concomitant]
     Active Substance: METRONIDAZOLE
     Dosage: UNK
     Dates: start: 2000
  9. PROCARDIA [Concomitant]
     Active Substance: NIFEDIPINE
  10. IBUPROFEN. [Concomitant]
     Active Substance: IBUPROFEN
  11. DIFLUCAN [Concomitant]
     Active Substance: FLUCONAZOLE
  12. SPIRONOLACTONE. [Concomitant]
     Active Substance: SPIRONOLACTONE
     Dosage: UNK
     Dates: start: 2000
  13. HYDROCHLOROTHIAZIDE. [Concomitant]
     Active Substance: HYDROCHLOROTHIAZIDE
  14. KEFLEX [Concomitant]
     Active Substance: CEPHALEXIN
  15. CLINDAMYCIN PHOSPHATE. [Concomitant]
     Active Substance: CLINDAMYCIN PHOSPHATE
  16. COLACE [Concomitant]
     Active Substance: DOCUSATE SODIUM

REACTIONS (9)
  - Uterine perforation [None]
  - Anxiety [None]
  - Device issue [None]
  - Emotional distress [None]
  - Device dislocation [None]
  - Device difficult to use [None]
  - Injury [None]
  - Pain [None]
  - Depression [None]

NARRATIVE: CASE EVENT DATE: 201305
